FAERS Safety Report 4657597-6 (Version None)
Quarter: 2005Q2

REPORT INFORMATION
  Report Type: 
  Country: None (occurrence: None)
  Receive Date: 20050405
  Receipt Date: 20040513
  Transmission Date: 20051028
  Serious: Yes (Hospitalization, Other)
  Sender: FDA-Public Use
  Company Number: 2004026994

PATIENT
  Sex: Male

DRUGS (5)
  1. GEODON [Suspect]
     Indication: SCHIZOPHRENIA
     Dosage: 160 MG (80, 2 IN 1 D), ORAL
     Route: 048
     Dates: start: 20040402
  2. RISPERDAL [Suspect]
     Indication: ILL-DEFINED DISORDER
  3. CLONAZEPAM [Concomitant]
  4. PROPRANOLOL HYDROCHLORIDE [Concomitant]
  5. TOCOPHEROL (TOCOPHEROL) [Concomitant]

REACTIONS (5)
  - BLOOD CREATINE PHOSPHOKINASE INCREASED [None]
  - MICTURITION DISORDER [None]
  - NECK PAIN [None]
  - SYNCOPE [None]
  - WHITE BLOOD CELL COUNT INCREASED [None]
